FAERS Safety Report 10520654 (Version 1)
Quarter: 2014Q4

REPORT INFORMATION
  Report Type: Spontaneous
  Country: US (occurrence: US)
  Receive Date: 20141015
  Receipt Date: 20141015
  Transmission Date: 20150528
  Serious: No
  Sender: FDA-Public Use
  Company Number: US-PFIZER INC-2014283199

PATIENT
  Age: 79 Year
  Sex: Male
  Weight: 96.6 kg

DRUGS (7)
  1. FLOMAX [Concomitant]
     Active Substance: TAMSULOSIN HYDROCHLORIDE
     Dosage: 4 MG, 1X/DAY
     Route: 048
     Dates: end: 201409
  2. TESTOSTERONE. [Concomitant]
     Active Substance: TESTOSTERONE
     Dosage: UNK,SHOT EVERY 2 WEEKS
     Dates: end: 201409
  3. METFORMIN [Concomitant]
     Active Substance: METFORMIN HYDROCHLORIDE
     Indication: DIABETES MELLITUS
     Dosage: 500 MG, 2X/DAY
     Route: 048
     Dates: end: 201409
  4. VITAMIN B12 [Concomitant]
     Active Substance: CYANOCOBALAMIN
     Dosage: UNK,MONTHLY
  5. VIAGRA [Suspect]
     Active Substance: SILDENAFIL CITRATE
     Indication: ERECTILE DYSFUNCTION
     Dosage: 100 MG, 1X/DAY(1 HR BEFORE BEDTIME)
     Route: 048
     Dates: start: 201409, end: 20141009
  6. VITAMIN D3 [Concomitant]
     Active Substance: CHOLECALCIFEROL
     Dosage: 5000 IU, ALTERNATE DAY
     Route: 048
     Dates: end: 201409
  7. HYDROCHLOROTHIAZIDE - LISINOPRIL [Concomitant]
     Indication: BLOOD PRESSURE
     Dosage: 1 DF, 1X/DAY
     Route: 048
     Dates: end: 201409

REACTIONS (3)
  - Sinus headache [Recovered/Resolved]
  - Muscle spasms [Recovered/Resolved]
  - Drug ineffective [Recovered/Resolved]

NARRATIVE: CASE EVENT DATE: 20141009
